FAERS Safety Report 6162873-4 (Version None)
Quarter: 2009Q2

REPORT INFORMATION
  Report Type: 
  Country: None (occurrence: None)
  Receive Date: 20090421
  Receipt Date: 20081215
  Transmission Date: 20091009
  Serious: No
  Sender: FDA-Public Use
  Company Number: US-ASTRAZENECA-2008UW27982

PATIENT
  Age: 57 Year
  Sex: Male

DRUGS (3)
  1. TOPROL-XL [Suspect]
     Indication: HYPERTENSION
     Route: 048
     Dates: start: 20030101
  2. TOPROL-XL [Suspect]
     Indication: TRANSIENT ISCHAEMIC ATTACK
     Route: 048
     Dates: start: 20030101
  3. ASPIRIN [Concomitant]

REACTIONS (2)
  - DISORIENTATION [None]
  - DRUG ADMINISTRATION ERROR [None]
